FAERS Safety Report 17389200 (Version 3)
Quarter: 2020Q2

REPORT INFORMATION
  Report Type: Spontaneous
  Country: BG (occurrence: BG)
  Receive Date: 20200207
  Receipt Date: 20200407
  Transmission Date: 20200713
  Serious: Yes (Death, Hospitalization)
  Sender: FDA-Public Use
  Company Number: BG-B.I. PHARMACEUTICALS,INC./RIDGEFIELD-2020-BI-006346

PATIENT
  Age: 42 Year
  Sex: Male

DRUGS (12)
  1. MOVALIS [Suspect]
     Active Substance: MELOXICAM
     Indication: RHEUMATOID ARTHRITIS
     Route: 030
  2. FLOSTERON [BETAMETHASONE] [Concomitant]
     Indication: RHEUMATOID ARTHRITIS
     Dosage: 7 MG/ML DAILY
     Route: 030
  3. FLOSTERON [BETAMETHASONE] [Concomitant]
     Indication: SPONDYLITIS
     Route: 030
  4. SULFASALAZINE. [Concomitant]
     Active Substance: SULFASALAZINE
     Indication: RHEUMATOID ARTHRITIS
     Dosage: PERORAL
     Route: 048
  5. PREGABALIN. [Concomitant]
     Active Substance: PREGABALIN
     Indication: RHEUMATOID ARTHRITIS
     Dosage: PERORAL
     Route: 048
  6. BETAMETHASONE. [Concomitant]
     Active Substance: BETAMETHASONE
     Indication: RHEUMATOID ARTHRITIS
     Route: 030
  7. SULFASALAZINE. [Concomitant]
     Active Substance: SULFASALAZINE
     Indication: SPONDYLITIS
  8. CELECOXIB. [Concomitant]
     Active Substance: CELECOXIB
     Indication: RHEUMATOID ARTHRITIS
     Dosage: PERORAL
     Route: 048
  9. CELECOXIB. [Concomitant]
     Active Substance: CELECOXIB
     Indication: SPONDYLITIS
  10. PREGABALIN. [Concomitant]
     Active Substance: PREGABALIN
     Indication: SPONDYLITIS
  11. MOVALIS [Suspect]
     Active Substance: MELOXICAM
     Indication: SPONDYLITIS
  12. BETAMETHASONE. [Concomitant]
     Active Substance: BETAMETHASONE
     Indication: SPONDYLITIS

REACTIONS (3)
  - Pleural effusion [Unknown]
  - Coma hepatic [Fatal]
  - Multiple organ dysfunction syndrome [Fatal]
